FAERS Safety Report 23561881 (Version 2)
Quarter: 2024Q2

REPORT INFORMATION
  Report Type: Other
  Country: US (occurrence: None)
  Receive Date: 20240225
  Receipt Date: 20240401
  Transmission Date: 20240716
  Serious: Yes (Other)
  Sender: FDA-Public Use
  Company Number: US-ROCHE-3064040

PATIENT
  Age: 45 Year
  Sex: Female
  Weight: 96.248 kg

DRUGS (3)
  1. OCREVUS [Suspect]
     Active Substance: OCRELIZUMAB
     Indication: Primary progressive multiple sclerosis
     Dosage: THEN 600 MG EVERY 6 MONTHS; DATE OF TREATMENT: 19/NOV/2021, 06/DEC/2021, 20/MAY/2022, 18/NOV/2022, 2
     Route: 042
     Dates: start: 20211119
  2. MODAFINIL [Concomitant]
     Active Substance: MODAFINIL
  3. OXCARBAZEPINE [Concomitant]
     Active Substance: OXCARBAZEPINE

REACTIONS (20)
  - Multiple sclerosis [Not Recovered/Not Resolved]
  - Hypoaesthesia [Not Recovered/Not Resolved]
  - Fall [Unknown]
  - Memory impairment [Not Recovered/Not Resolved]
  - Bladder disorder [Not Recovered/Not Resolved]
  - Muscular weakness [Not Recovered/Not Resolved]
  - Limb discomfort [Not Recovered/Not Resolved]
  - Choking [Not Recovered/Not Resolved]
  - Dysphagia [Not Recovered/Not Resolved]
  - Tremor [Not Recovered/Not Resolved]
  - T-lymphocyte count increased [Not Recovered/Not Resolved]
  - B-lymphocyte count increased [Not Recovered/Not Resolved]
  - Amnesia [Not Recovered/Not Resolved]
  - Fatigue [Not Recovered/Not Resolved]
  - Asthenia [Not Recovered/Not Resolved]
  - COVID-19 [Recovered/Resolved]
  - Drug hypersensitivity [Not Recovered/Not Resolved]
  - Pruritus [Recovered/Resolved]
  - Pharyngeal swelling [Recovered/Resolved]
  - Drug hypersensitivity [Recovered/Resolved]

NARRATIVE: CASE EVENT DATE: 20211206
